FAERS Safety Report 8589192-0 (Version None)
Quarter: 2012Q3

REPORT INFORMATION
  Report Type: 
  Country: None (occurrence: None)
  Receive Date: 20120813
  Receipt Date: 20120801
  Transmission Date: 20120928
  Serious: Yes (Other)
  Sender: FDA-Public Use
  Company Number: ZA-SANOFI-AVENTIS-2012SA055262

PATIENT
  Age: 65 Year
  Sex: Male
  Weight: 77 kg

DRUGS (4)
  1. EZETIMIBE [Concomitant]
  2. PERINDOPRIL ERBUMINE [Concomitant]
  3. KETEK [Suspect]
     Indication: SINUSITIS
     Route: 048
     Dates: start: 20120702, end: 20120705
  4. CRESTOR [Concomitant]

REACTIONS (3)
  - ABDOMINAL DISCOMFORT [None]
  - ABDOMINAL DISTENSION [None]
  - RECTAL HAEMORRHAGE [None]
